FAERS Safety Report 15990513 (Version 1)
Quarter: 2019Q1

REPORT INFORMATION
  Report Type: Spontaneous
  Country: US (occurrence: US)
  Receive Date: 20190221
  Receipt Date: 20190221
  Transmission Date: 20190418
  Serious: Yes (Life-Threatening, Other)
  Sender: FDA-Public Use
  Company Number: US-HIKMA PHARMACEUTICALS USA INC.-US-H14001-19-00966

PATIENT
  Sex: Female

DRUGS (6)
  1. IMURAN [Concomitant]
     Active Substance: AZATHIOPRINE
     Indication: DERMATOMYOSITIS
     Route: 065
  2. VFEND [Concomitant]
     Active Substance: VORICONAZOLE
     Indication: PNEUMONIA
     Route: 048
     Dates: start: 20170627
  3. PREDNISONE. [Suspect]
     Active Substance: PREDNISONE
     Indication: PRODUCT USED FOR UNKNOWN INDICATION
     Route: 065
  4. XARELTO [Concomitant]
     Active Substance: RIVAROXABAN
     Indication: ATRIAL FIBRILLATION
     Route: 048
  5. VFEND [Concomitant]
     Active Substance: VORICONAZOLE
     Route: 065
  6. VORICONAZOLE. [Concomitant]
     Active Substance: VORICONAZOLE
     Indication: PNEUMONIA
     Dates: start: 201707

REACTIONS (7)
  - Pneumonia fungal [Recovering/Resolving]
  - Eye colour change [Not Recovered/Not Resolved]
  - Drug interaction [Unknown]
  - Blood glucose abnormal [Unknown]
  - Visual impairment [Not Recovered/Not Resolved]
  - Diabetes mellitus [Unknown]
  - Heart rate decreased [Unknown]

NARRATIVE: CASE EVENT DATE: 20170730
